FAERS Safety Report 5059927-2 (Version None)
Quarter: 2006Q3

REPORT INFORMATION
  Report Type: 
  Country: None (occurrence: None)
  Receive Date: 20060718
  Receipt Date: 20060707
  Transmission Date: 20061208
  Serious: Yes (Death, Life-Threatening)
  Sender: FDA-Public Use
  Company Number: 02H-153-0205461-00

PATIENT
  Age: 1 Day
  Sex: Female
  Weight: 3.165 kg

DRUGS (1)
  1. ATRACURIUM BESYLATE [Suspect]
     Dosage: 10 MG, ONCE, INTRAMUSCULAR
     Route: 030
     Dates: start: 20021129, end: 20021129

REACTIONS (12)
  - BRADYCARDIA [None]
  - COMA [None]
  - CYANOSIS [None]
  - HYPERGLYCAEMIA [None]
  - MEDICATION ERROR [None]
  - METABOLIC ACIDOSIS [None]
  - MULTI-ORGAN FAILURE [None]
  - NEONATAL RESPIRATORY ARREST [None]
  - PULSE ABSENT [None]
  - RESPIRATORY ACIDOSIS [None]
  - RESPIRATORY FAILURE [None]
  - WRONG DRUG ADMINISTERED [None]
